FAERS Safety Report 6300466-6 (Version None)
Quarter: 2009Q3

REPORT INFORMATION
  Report Type: 
  Country: None (occurrence: None)
  Receive Date: 20090806
  Receipt Date: 20090217
  Transmission Date: 20100115
  Serious: No
  Sender: FDA-Public Use
  Company Number: US-ABBOTT-08P-163-0484757-00

PATIENT
  Sex: Female
  Weight: 59.02 kg

DRUGS (5)
  1. DEPAKOTE ER [Suspect]
     Indication: CONVULSION
     Route: 048
     Dates: start: 20080601, end: 20081026
  2. SPIRIVA [Concomitant]
     Indication: CHRONIC OBSTRUCTIVE PULMONARY DISEASE
     Route: 055
  3. COMBIVENT [Concomitant]
     Indication: DRUG USE FOR UNKNOWN INDICATION
     Route: 055
  4. UNKNOWN COUGH SYRUP [Concomitant]
     Indication: CHRONIC OBSTRUCTIVE PULMONARY DISEASE
     Route: 048
  5. DILANTIN [Concomitant]
     Indication: CONVULSION

REACTIONS (2)
  - ALOPECIA [None]
  - PLATELET COUNT DECREASED [None]
